FAERS Safety Report 7775184-8 (Version None)
Quarter: 2011Q3

REPORT INFORMATION
  Report Type: 
  Country: None (occurrence: None)
  Receive Date: 20110923
  Receipt Date: 20110921
  Transmission Date: 20111222
  Serious: Yes (Hospitalization)
  Sender: FDA-Public Use
  Company Number: DE-BRISTOL-MYERS SQUIBB COMPANY-15389745

PATIENT
  Age: 64 Year
  Sex: Male

DRUGS (3)
  1. VINORELBINE [Suspect]
     Indication: NON-SMALL CELL LUNG CANCER
     Dosage: RECENT INF:04JAN2006 NO OF INF:12
     Route: 042
     Dates: start: 20050907
  2. PREDNISOLONE [Concomitant]
     Indication: ATYPICAL MYCOBACTERIAL INFECTION
     Route: 048
     Dates: start: 20100811, end: 20100905
  3. CISPLATIN [Suspect]
     Indication: NON-SMALL CELL LUNG CANCER
     Dosage: RECENT INF:28DEC2005 NO OF INF:6
     Route: 042
     Dates: start: 20050907

REACTIONS (2)
  - ATYPICAL MYCOBACTERIAL INFECTION [None]
  - DYSPNOEA [None]
